FAERS Safety Report 25701559 (Version 1)
Quarter: 2025Q3

REPORT INFORMATION
  Report Type: Spontaneous
  Country: EU (occurrence: EU)
  Receive Date: 20250819
  Receipt Date: 20250819
  Transmission Date: 20251020
  Serious: Yes (Hospitalization, Disabling)
  Sender: SANDOZ
  Company Number: EU-002147023-PHBS2005DE08009

PATIENT
  Age: 53 Year
  Sex: Male

DRUGS (3)
  1. AZATHIOPRINE [Suspect]
     Active Substance: AZATHIOPRINE
     Indication: Heart transplant
     Route: 065
     Dates: start: 1999
  2. CYCLOSPORINE [Suspect]
     Active Substance: CYCLOSPORINE
     Indication: Heart transplant
     Route: 065
     Dates: start: 1999
  3. PREDNISOLONE [Suspect]
     Active Substance: PREDNISOLONE
     Indication: Heart transplant
     Route: 065
     Dates: start: 1999

REACTIONS (12)
  - Colitis ulcerative [Recovered/Resolved with Sequelae]
  - Abdominal pain [Recovered/Resolved with Sequelae]
  - Diarrhoea haemorrhagic [Recovered/Resolved with Sequelae]
  - Pyrexia [Recovered/Resolved with Sequelae]
  - Red blood cell sedimentation rate increased [Recovered/Resolved with Sequelae]
  - Epstein-Barr virus infection [Unknown]
  - C-reactive protein increased [Recovered/Resolved with Sequelae]
  - Colectomy [Recovered/Resolved with Sequelae]
  - Ileostomy [Recovered/Resolved with Sequelae]
  - Laparotomy [Recovered/Resolved with Sequelae]
  - Epstein-Barr virus antibody positive [Unknown]
  - Epstein-Barr virus test positive [Unknown]

NARRATIVE: CASE EVENT DATE: 20000101
